FAERS Safety Report 5344150-4 (Version None)
Quarter: 2007Q2

REPORT INFORMATION
  Report Type: 
  Country: None (occurrence: None)
  Receive Date: 20070604
  Receipt Date: 20070530
  Transmission Date: 20071010
  Serious: Yes (Hospitalization)
  Sender: FDA-Public Use
  Company Number: DE-SANOFI-SYNTHELABO-F01200700699

PATIENT
  Sex: Male
  Weight: 72 kg

DRUGS (2)
  1. ASPIRIN [Concomitant]
     Indication: PLATELET AGGREGATION
     Route: 048
     Dates: start: 20061106
  2. LEUPROLIDE ACETATE [Suspect]
     Indication: PROSTATE CANCER
     Route: 058
     Dates: start: 20070307, end: 20070307

REACTIONS (2)
  - LOW DENSITY LIPOPROTEIN INCREASED [None]
  - TRANSIENT ISCHAEMIC ATTACK [None]
